FAERS Safety Report 5260186-6 (Version None)
Quarter: 2007Q1

REPORT INFORMATION
  Report Type: 
  Country: None (occurrence: None)
  Receive Date: 20061208
  Receipt Date: 20050419
  Transmission Date: 20070707
  Serious: Yes (Hospitalization)
  Sender: FDA-Public Use
  Company Number: 2005UW02065

PATIENT
  Age: 54 Year
  Sex: Female
  Weight: 76.657 kg

DRUGS (8)
  1. NEXIUM [Suspect]
     Indication: FLATULENCE
     Dosage: 40 MG QD PO
     Route: 048
     Dates: start: 20050101, end: 20050101
  2. NEXIUM [Suspect]
     Indication: FLATULENCE
     Dosage: 40 MG QD PO
     Route: 048
     Dates: start: 20040124, end: 20050201
  3. NEXIUM [Suspect]
     Indication: FLATULENCE
     Dosage: 40 MG QD PO
     Route: 048
     Dates: start: 20050206, end: 20050201
  4. NEURONTIN [Concomitant]
  5. AMITRIPTYLINE HCL [Concomitant]
  6. LIPITOR [Concomitant]
  7. CENESTIN [Concomitant]
  8. PROMETRIUM [Concomitant]

REACTIONS (5)
  - ABDOMINAL PAIN UPPER [None]
  - DYSPNOEA [None]
  - LOSS OF CONSCIOUSNESS [None]
  - MALAISE [None]
  - PAIN [None]
